FAERS Safety Report 15894225 (Version 1)
Quarter: 2019Q1

REPORT INFORMATION
  Report Type: Spontaneous
  Country: CA (occurrence: CA)
  Receive Date: 20190131
  Receipt Date: 20190131
  Transmission Date: 20190417
  Serious: Yes (Other)
  Sender: FDA-Public Use
  Company Number: CA-LUPIN PHARMACEUTICALS INC.-2019-00461

PATIENT
  Age: 84 Year
  Sex: Male

DRUGS (5)
  1. PREGABALIN. [Suspect]
     Active Substance: PREGABALIN
     Indication: CAUDA EQUINA SYNDROME
     Dosage: 100 MG, QD, (AT NIGHT)
     Route: 065
  2. PARACETAMOL [Suspect]
     Active Substance: ACETAMINOPHEN
     Indication: CAUDA EQUINA SYNDROME
     Dosage: 1000 MG, QOD, (EVERY 6 HOURS)
     Route: 065
  3. MORPHINE [Suspect]
     Active Substance: MORPHINE
     Indication: CAUDA EQUINA SYNDROME
     Dosage: 15 MG, BID
     Route: 065
  4. METHADONE [Suspect]
     Active Substance: METHADONE HYDROCHLORIDE
     Indication: CAUDA EQUINA SYNDROME
     Dosage: 2 MG, BID
     Route: 065
  5. DEXAMETHASONE. [Suspect]
     Active Substance: DEXAMETHASONE
     Indication: CAUDA EQUINA SYNDROME
     Dosage: 8 MG, BID
     Route: 065

REACTIONS (2)
  - Somnolence [Unknown]
  - Delirium [Unknown]
